FAERS Safety Report 17292193 (Version 1)
Quarter: 2020Q1

REPORT INFORMATION
  Report Type: Spontaneous
  Country: US (occurrence: US)
  Receive Date: 20200119
  Receipt Date: 20200119
  Transmission Date: 20200409
  Serious: Yes (Life-Threatening, Hospitalization)
  Sender: FDA-Public Use
  Company Number: None

PATIENT
  Age: 79 Year
  Sex: Female
  Weight: 92.25 kg

DRUGS (9)
  1. MYCOPHENOLATE 500MG [Concomitant]
     Active Substance: MYCOPHENOLIC ACID
  2. JARDIANCE [Suspect]
     Active Substance: EMPAGLIFLOZIN
     Indication: DIABETES MELLITUS
     Dates: start: 20191120, end: 20191126
  3. ONE TOUCH ULTRA STRIPS [Concomitant]
  4. ATORVASTATIN 120MG [Concomitant]
  5. NOVO LOG MIX [Concomitant]
  6. LOW DOSE ASPIRIN 81MG [Concomitant]
  7. GLIMEPIRIDE 24MG [Concomitant]
  8. TEMAZEPAM 15MG [Concomitant]
  9. INSULIN 73/30 [Concomitant]

REACTIONS (3)
  - Dehydration [None]
  - Bradycardia [None]
  - Constipation [None]

NARRATIVE: CASE EVENT DATE: 20191201
